FAERS Safety Report 8720099 (Version 3)
Quarter: 2013Q1

REPORT INFORMATION
  Report Type: Spontaneous
  Country: US (occurrence: US)
  Receive Date: 20120813
  Receipt Date: 20130311
  Transmission Date: 20140127
  Serious: No
  Sender: FDA-Public Use
  Company Number: US-PFIZER INC-2012194404

PATIENT
  Age: 84 Year
  Sex: Male
  Weight: 75.74 kg

DRUGS (3)
  1. TOVIAZ [Suspect]
     Indication: URINARY INCONTINENCE
     Dosage: 8 MG, UNK
     Dates: start: 2012, end: 2012
  2. DETROL LA [Suspect]
     Indication: URINARY INCONTINENCE
     Dosage: 4 MG, 1X/DAY
     Dates: start: 2012, end: 201303
  3. METFORMIN HYDROCHLORIDE/SITAGLIPTIN [Concomitant]
     Indication: BLOOD GLUCOSE ABNORMAL
     Dosage: 50/500 MG, UNK

REACTIONS (1)
  - Drug ineffective [Unknown]
